FAERS Safety Report 6165141-X (Version None)
Quarter: 2009Q2

REPORT INFORMATION
  Report Type: 
  Country: None (occurrence: None)
  Receive Date: 20090421
  Receipt Date: 20090421
  Transmission Date: 20091009
  Serious: Yes (Other)
  Sender: FDA-Public Use
  Company Number: None

PATIENT
  Age: 13 Year
  Sex: Female
  Weight: 54.8852 kg

DRUGS (3)
  1. PREVACID [Suspect]
     Indication: ABDOMINAL PAIN UPPER
     Dosage: ONCE EVERY 12 HOUR PO
     Route: 048
     Dates: start: 20090414, end: 20090420
  2. PREVACID [Suspect]
     Indication: NAUSEA
     Dosage: ONCE EVERY 12 HOUR PO
     Route: 048
     Dates: start: 20090414, end: 20090420
  3. PREVACID [Suspect]
     Indication: VOMITING
     Dosage: ONCE EVERY 12 HOUR PO
     Route: 048
     Dates: start: 20090414, end: 20090420

REACTIONS (4)
  - ABDOMINAL PAIN UPPER [None]
  - ANGINA PECTORIS [None]
  - NAUSEA [None]
  - VOMITING [None]
